FAERS Safety Report 9393125 (Version 1)
Quarter: 2013Q3

REPORT INFORMATION
  Report Type: Spontaneous
  Country: AU (occurrence: AU)
  Receive Date: 20130710
  Receipt Date: 20130710
  Transmission Date: 20140515
  Serious: Yes (Hospitalization, Other)
  Sender: FDA-Public Use
  Company Number: AU-ELI_LILLY_AND_COMPANY-AU201307002270

PATIENT
  Sex: Male

DRUGS (2)
  1. STRATTERA [Suspect]
     Dosage: 60 MG, UNKNOWN
     Dates: start: 20121115, end: 20130205
  2. FLUOXETINE [Suspect]

REACTIONS (1)
  - Sinus tachycardia [Not Recovered/Not Resolved]
